FAERS Safety Report 5152326-4 (Version None)
Quarter: 2006Q4

REPORT INFORMATION
  Report Type: 
  Country: None (occurrence: None)
  Receive Date: 20061116
  Receipt Date: 20061113
  Transmission Date: 20070319
  Serious: Yes (Death, Hospitalization)
  Sender: FDA-Public Use
  Company Number: FR-AVENTIS-200613993FR

PATIENT
  Age: 62 Year
  Sex: Male

DRUGS (4)
  1. LOVENOX [Suspect]
     Route: 058
     Dates: start: 20060630, end: 20060630
  2. SOLU-MEDROL [Suspect]
     Route: 042
     Dates: start: 20060628, end: 20060702
  3. EUPANTOL                           /01263201/ [Suspect]
     Route: 042
     Dates: end: 20060703
  4. ACETAMINOPHEN [Suspect]
     Route: 042
     Dates: start: 20060629, end: 20060630

REACTIONS (4)
  - ASTHENIA [None]
  - CONDITION AGGRAVATED [None]
  - RENAL FAILURE ACUTE [None]
  - THROMBOCYTOPENIA [None]
